FAERS Safety Report 15410619 (Version 1)
Quarter: 2018Q3

REPORT INFORMATION
  Report Type: Spontaneous
  Country: US (occurrence: US)
  Receive Date: 20180919
  Receipt Date: 20180919
  Transmission Date: 20181010
  Serious: Yes (Other)
  Sender: FDA-Public Use
  Company Number: None

PATIENT
  Age: 42 Year
  Sex: Female
  Weight: 92.25 kg

DRUGS (13)
  1. ALBUTEROL SULFATE 2.5 MG/3ML [Concomitant]
     Dates: start: 20160101
  2. ZOLOFT [Concomitant]
     Active Substance: SERTRALINE HYDROCHLORIDE
     Dates: start: 20151111
  3. RISPERIDONE 2 MG [Concomitant]
     Active Substance: RISPERIDONE
     Dates: start: 20170809
  4. SINGULAIR [Concomitant]
     Active Substance: MONTELUKAST SODIUM
     Dates: start: 20121005
  5. PROVENTIL 90 MCG/ACT [Concomitant]
     Dates: start: 20131211
  6. LOSARTAN 100 MG [Concomitant]
     Active Substance: LOSARTAN
     Dates: start: 20180123
  7. TOPAMAX 50 MG [Concomitant]
     Dates: start: 20180813
  8. VOLTAREN 1% [Concomitant]
     Dates: start: 20160125
  9. FLONASE 0.05% NASAL SPRAY [Concomitant]
     Dates: start: 20160525
  10. IMITREX 100 MG [Concomitant]
     Dates: start: 20160525
  11. XYZAL 5 MG [Concomitant]
     Dates: start: 20170628
  12. BREO ELLIPTA [Suspect]
     Active Substance: FLUTICASONE FUROATE\VILANTEROL TRIFENATATE
     Indication: ASTHMA
  13. NEXIUM [Concomitant]
     Active Substance: ESOMEPRAZOLE MAGNESIUM
     Dates: start: 20171208

REACTIONS (1)
  - Rash [None]

NARRATIVE: CASE EVENT DATE: 20180405
